FAERS Safety Report 5155045-3 (Version None)
Quarter: 2006Q4

REPORT INFORMATION
  Report Type: 
  Country: None (occurrence: None)
  Receive Date: 20061121
  Receipt Date: 20061113
  Transmission Date: 20070319
  Serious: Yes (Hospitalization)
  Sender: FDA-Public Use
  Company Number: US-ELI_LILLY_AND_COMPANY-US200611002325

PATIENT
  Age: 47 Year
  Sex: Male

DRUGS (5)
  1. PEMETREXED [Suspect]
     Indication: MESOTHELIOMA MALIGNANT
     Dosage: 500 MG/M2, UNK
     Dates: start: 20060101
  2. CARBOPLATIN [Concomitant]
     Dosage: UNK, UNK
     Dates: start: 20061101
  3. CISPLATIN [Concomitant]
     Dates: start: 20060101, end: 20060101
  4. FOLIC ACID [Concomitant]
     Indication: VITAMIN SUPPLEMENTATION
     Dates: start: 20060101
  5. VITAMIN B-12 [Concomitant]
     Indication: VITAMIN SUPPLEMENTATION
     Dates: start: 20060101

REACTIONS (4)
  - MOUTH ULCERATION [None]
  - NAUSEA [None]
  - PNEUMONIA [None]
  - VOMITING [None]
